FAERS Safety Report 9160289 (Version 3)
Quarter: 2013Q2

REPORT INFORMATION
  Report Type: Report from Study
  Country: ZA (occurrence: ZA)
  Receive Date: 20130313
  Receipt Date: 20130412
  Transmission Date: 20140414
  Serious: Yes (Death, Hospitalization)
  Sender: FDA-Public Use
  Company Number: ZA-ROCHE-1200571

PATIENT
  Age: 55 Year
  Sex: Male

DRUGS (4)
  1. MIRCERA [Suspect]
     Indication: PRODUCT USED FOR UNKNOWN INDICATION
     Route: 058
     Dates: start: 20130131
  2. MIRCERA [Suspect]
     Route: 065
     Dates: start: 20120125
  3. MIRCERA [Suspect]
     Route: 065
     Dates: start: 20111025
  4. RECORMON [Concomitant]
     Route: 065
     Dates: start: 20100209

REACTIONS (3)
  - Myocardial infarction [Unknown]
  - Coronary artery bypass [Unknown]
  - Vascular graft [Fatal]
